FAERS Safety Report 11869798 (Version 14)
Quarter: 2017Q1

REPORT INFORMATION
  Report Type: Report from Study
  Country: US (occurrence: US)
  Receive Date: 20151228
  Receipt Date: 20170206
  Transmission Date: 20170428
  Serious: Yes (Hospitalization, Other)
  Sender: FDA-Public Use
  Company Number: PHEH2015US026430

PATIENT
  Age: 31 Year
  Sex: Female
  Weight: 77.55 kg

DRUGS (18)
  1. RITALIN [Concomitant]
     Active Substance: METHYLPHENIDATE HYDROCHLORIDE
     Indication: MULTIPLE SCLEROSIS
     Dosage: 10 MG, QD
     Route: 048
     Dates: start: 201508, end: 20151214
  2. PHENTERMINE. [Concomitant]
     Active Substance: PHENTERMINE
     Indication: WEIGHT DECREASED
     Dosage: 37.5 MG, QD
     Route: 048
     Dates: start: 201507, end: 20151214
  3. TYLENOL [Concomitant]
     Active Substance: ACETAMINOPHEN
     Indication: HEADACHE
  4. ZITHROMAX [Concomitant]
     Active Substance: AZITHROMYCIN DIHYDRATE
     Indication: PROPHYLAXIS
     Dosage: 1 G, QD
     Route: 048
     Dates: start: 20160122, end: 20160122
  5. DHA [Concomitant]
     Active Substance: DIETARY SUPPLEMENT
     Indication: SUPPLEMENTATION THERAPY
     Dosage: DURING THE THIRD TRIMESTER
     Route: 048
     Dates: start: 201512, end: 20161101
  6. AMLODIPINE [Concomitant]
     Active Substance: AMLODIPINE BESYLATE
     Indication: HYPERTENSION
     Dosage: UNK
     Route: 065
     Dates: start: 201106, end: 2014
  7. GINGER. [Concomitant]
     Active Substance: GINGER
     Indication: NAUSEA
     Dosage: 500 MG, PRN
     Route: 048
     Dates: start: 20151225
  8. ROCEPHIN [Concomitant]
     Active Substance: CEFTRIAXONE SODIUM
     Indication: PROPHYLAXIS
     Dosage: 1 G, QD
     Route: 065
     Dates: start: 20160122, end: 20160122
  9. ZANTAC [Concomitant]
     Active Substance: RANITIDINE HYDROCHLORIDE
     Indication: GASTROOESOPHAGEAL REFLUX DISEASE
     Dosage: 150 MG, TAKEN DURING 2ND AND 3RD TRIMESTER
     Route: 048
  10. VITAMIN D [Concomitant]
     Active Substance: CHOLECALCIFEROL
     Indication: PRODUCT USED FOR UNKNOWN INDICATION
     Dosage: ONLY DURING 2ND AND 3RD TRIMESTERS
     Route: 048
     Dates: start: 20160404
  11. TUMS [Concomitant]
     Active Substance: CALCIUM CARBONATE
     Indication: GASTROOESOPHAGEAL REFLUX DISEASE
     Dosage: DURING 2ND AND 3RD TRIMESTERS
     Route: 048
     Dates: start: 201603
  12. VITAMIN B6 [Concomitant]
     Active Substance: PYRIDOXINE HYDROCHLORIDE
     Indication: NAUSEA
     Dosage: 50 MG, PRN (DURING THE FIRST TRIMESTER)
     Route: 048
     Dates: start: 20151225
  13. TYLENOL [Concomitant]
     Active Substance: ACETAMINOPHEN
     Indication: PAIN
     Dosage: 650 MG, PRN (DURING THE THIRD TRIMESTER) 2-3 TABLETS
     Route: 048
     Dates: start: 20151225
  14. RITALIN [Concomitant]
     Active Substance: METHYLPHENIDATE HYDROCHLORIDE
     Indication: FATIGUE
  15. UNISOM SLEEPTABS [Concomitant]
     Active Substance: DOXYLAMINE SUCCINATE
     Indication: SLEEP DISORDER
     Dosage: 25 MG, PRN (DURING 1ST TRIMESTER ONLY)
     Route: 048
     Dates: start: 20151225
  16. GILENYA [Suspect]
     Active Substance: FINGOLIMOD HYDROCHLORIDE
     Indication: RELAPSING-REMITTING MULTIPLE SCLEROSIS
     Dosage: 0.5 MG, QD
     Route: 048
     Dates: start: 201104, end: 20151215
  17. AMITRIPTYLINE [Concomitant]
     Active Substance: AMITRIPTYLINE
     Indication: SLEEP DISORDER
     Dosage: 25 MG, QD
     Route: 048
     Dates: start: 2015, end: 20151201
  18. PRENATAL [Concomitant]
     Active Substance: VITAMINS
     Indication: PREGNANCY
     Dosage: 2 GUMMIES DAILY
     Route: 048
     Dates: start: 20151220, end: 20161101

REACTIONS (9)
  - Maternal exposure during pregnancy [Unknown]
  - Normal newborn [Unknown]
  - Induced labour [Unknown]
  - Premature labour [Recovered/Resolved]
  - Pre-eclampsia [Recovered/Resolved]
  - Fungal infection [Recovered/Resolved]
  - Abdominal pain [Recovered/Resolved]
  - Mastitis [Recovered/Resolved]
  - Cellulitis streptococcal [Recovered/Resolved]

NARRATIVE: CASE EVENT DATE: 20160119
